FAERS Safety Report 6985308-8 (Version None)
Quarter: 2010Q3

REPORT INFORMATION
  Report Type: 
  Country: None (occurrence: None)
  Receive Date: 20100915
  Receipt Date: 20100625
  Transmission Date: 20110219
  Serious: No
  Sender: FDA-Public Use
  Company Number: US-PFIZER INC-2010080177

PATIENT
  Sex: Male
  Weight: 81.633 kg

DRUGS (8)
  1. LYRICA [Suspect]
     Indication: BACK PAIN
     Dosage: 50 MG, DAILY
     Route: 048
     Dates: start: 20100601
  2. LYRICA [Suspect]
     Dosage: 100 MG, DAILY
     Route: 048
     Dates: start: 20100622
  3. NAPROXEN [Concomitant]
     Indication: BACK PAIN
     Dosage: 500 MG, 2X/DAY
     Route: 048
  4. NAPROXEN [Concomitant]
     Indication: ARTHRITIS
  5. ALEVE (CAPLET) [Concomitant]
     Indication: BACK PAIN
     Dosage: 220 MG, AS NEEDED
     Route: 048
  6. ALEVE (CAPLET) [Concomitant]
     Indication: ARTHRITIS
  7. ACETAMINOPHEN [Concomitant]
     Indication: SLEEP DISORDER
     Dosage: UNK
     Route: 048
  8. ZOCOR [Concomitant]
     Indication: BLOOD CHOLESTEROL INCREASED
     Dosage: 40 MG, DAILY
     Route: 048

REACTIONS (2)
  - DRUG INEFFECTIVE [None]
  - SOMNOLENCE [None]
